FAERS Safety Report 18174910 (Version 1)
Quarter: 2020Q3

REPORT INFORMATION
  Report Type: Spontaneous
  Country: DE (occurrence: DE)
  Receive Date: 20200820
  Receipt Date: 20200820
  Transmission Date: 20201103
  Serious: Yes (Other)
  Sender: FDA-Public Use
  Company Number: DE-TEVA-2020-DE-1815065

PATIENT
  Age: 15 Year
  Sex: Male

DRUGS (1)
  1. COPAXONE [Suspect]
     Active Substance: GLATIRAMER ACETATE
     Route: 065

REACTIONS (7)
  - Malaise [Unknown]
  - Chest discomfort [Unknown]
  - Swelling face [Unknown]
  - Flushing [Unknown]
  - Depressed level of consciousness [Unknown]
  - Periorbital swelling [Unknown]
  - Mouth swelling [Unknown]
